FAERS Safety Report 21006209 (Version 1)
Quarter: 2022Q2

REPORT INFORMATION
  Report Type: Report from Study
  Country: CA (occurrence: CA)
  Receive Date: 20220624
  Receipt Date: 20220624
  Transmission Date: 20220721
  Serious: Yes (Death, Hospitalization, Other)
  Sender: FDA-Public Use
  Company Number: CA-SHIRE-CA201927635AA

PATIENT
  Age: 66 Year
  Sex: Male

DRUGS (3)
  1. HUMAN IMMUNOGLOBULIN G [Suspect]
     Active Substance: HUMAN IMMUNOGLOBULIN G
     Indication: Secondary immunodeficiency
     Dosage: 10 GRAM, 1X/WEEK
     Route: 058
     Dates: start: 20180927
  2. HUMAN IMMUNOGLOBULIN G [Suspect]
     Active Substance: HUMAN IMMUNOGLOBULIN G
     Dosage: 10 UNK
     Route: 058
     Dates: start: 20180928
  3. HIZENTRA [Concomitant]
     Active Substance: HUMAN IMMUNOGLOBULIN G
     Indication: Product used for unknown indication

REACTIONS (5)
  - Death [Fatal]
  - Cellulitis [Unknown]
  - Laziness [Unknown]
  - Hangover [Unknown]
  - Malaise [Unknown]

NARRATIVE: CASE EVENT DATE: 20220311
